FAERS Safety Report 6426619-4 (Version None)
Quarter: 2009Q4

REPORT INFORMATION
  Report Type: 
  Country: None (occurrence: None)
  Receive Date: 20091104
  Receipt Date: 20091028
  Transmission Date: 20100525
  Serious: Yes (Hospitalization)
  Sender: FDA-Public Use
  Company Number: US-ELI_LILLY_AND_COMPANY-US200910007456

PATIENT
  Sex: Male
  Weight: 86.621 kg

DRUGS (12)
  1. EXENATIDE [Suspect]
     Indication: TYPE 2 DIABETES MELLITUS
     Dosage: 5 UG, 2/D
     Route: 058
     Dates: start: 20081209
  2. ZETIA [Concomitant]
     Indication: HYPERLIPIDAEMIA
     Dates: start: 20060101
  3. ATENOLOL [Concomitant]
     Indication: HYPERTENSION
     Dates: start: 19990823
  4. FLOMAX [Concomitant]
     Dates: start: 20010101
  5. COZAAR [Concomitant]
     Indication: HYPERTENSION
     Dates: start: 20020103
  6. PROSCAR [Concomitant]
     Dates: start: 20010101
  7. PRAVASTATIN [Concomitant]
     Indication: HYPERLIPIDAEMIA
     Dates: start: 20040909
  8. AMARYL [Concomitant]
     Indication: TYPE 2 DIABETES MELLITUS
     Dates: start: 20070110
  9. ARICEPT [Concomitant]
     Indication: AMNESIA
     Dates: start: 20060101
  10. NAMENDA [Concomitant]
     Indication: AMNESIA
     Dates: start: 20060101
  11. LEVEMIR [Concomitant]
     Indication: TYPE 2 DIABETES MELLITUS
     Dates: start: 20070101
  12. ATARAX /SCH/ [Concomitant]
     Indication: URTICARIA
     Dates: start: 20060101

REACTIONS (5)
  - BRONCHITIS [None]
  - CHRONIC OBSTRUCTIVE PULMONARY DISEASE [None]
  - HYPERCAPNIA [None]
  - HYPOXIA [None]
  - RESPIRATORY ACIDOSIS [None]
